FAERS Safety Report 4899275-4 (Version None)
Quarter: 2006Q1

REPORT INFORMATION
  Report Type: 
  Country: None (occurrence: None)
  Receive Date: 20060106
  Receipt Date: 20041122
  Transmission Date: 20060701
  Serious: Yes (Other)
  Sender: FDA-Public Use
  Company Number: WAES 0411USA00637

PATIENT
  Age: 93 Year
  Sex: Female

DRUGS (6)
  1. TIMOPTIC-XE [Suspect]
     Indication: GLAUCOMA
     Dosage: 2 DROPS/DAILY/OPHT
     Route: 047
     Dates: start: 20031101, end: 20041004
  2. ALLEGRA [Concomitant]
  3. ALPHAGAN [Concomitant]
  4. EVISTA [Concomitant]
  5. THYROID TAB [Concomitant]
  6. WARFARIN [Concomitant]

REACTIONS (3)
  - EYE IRRITATION [None]
  - EYE PRURITUS [None]
  - OCULAR HYPERAEMIA [None]
